FAERS Safety Report 16128140 (Version 8)
Quarter: 2021Q1

REPORT INFORMATION
  Report Type: Report from Study
  Country: US (occurrence: US)
  Receive Date: 20190328
  Receipt Date: 20210316
  Transmission Date: 20210419
  Serious: Yes (Other)
  Sender: FDA-Public Use
  Company Number: PHHY2018US201264

PATIENT
  Age: 18 Year
  Sex: Female

DRUGS (4)
  1. FLUDARABINE [Concomitant]
     Active Substance: FLUDARABINE PHOSPHATE
     Indication: CHEMOTHERAPY
     Dosage: UNK
     Route: 065
  2. KYMRIAH [Suspect]
     Active Substance: TISAGENLECLEUCEL
     Dosage: UNK, ONCE/SINGLE
     Route: 041
     Dates: start: 20200420
  3. CYCLOPHOSPHAMIDE. [Concomitant]
     Active Substance: CYCLOPHOSPHAMIDE
     Indication: CHEMOTHERAPY
     Dosage: UNK
     Route: 065
  4. KYMRIAH [Suspect]
     Active Substance: TISAGENLECLEUCEL
     Indication: ACUTE LYMPHOCYTIC LEUKAEMIA
     Dosage: UNK UNK, ONCE/SINGLE
     Route: 041
     Dates: start: 20180208

REACTIONS (34)
  - Respiratory disorder [Unknown]
  - Off label use [Unknown]
  - Hypogammaglobulinaemia [Unknown]
  - Pseudomonas infection [Unknown]
  - Feeling abnormal [Unknown]
  - Gastroenteritis viral [Recovering/Resolving]
  - Illness [Recovering/Resolving]
  - Rhinovirus infection [Unknown]
  - Neurotoxicity [Recovered/Resolved]
  - Staphylococcal infection [Unknown]
  - Anosmia [Unknown]
  - Varicella zoster virus infection [Unknown]
  - Iron overload [Unknown]
  - Cytomegalovirus infection [Unknown]
  - Nasal septum disorder [Unknown]
  - Neutrophil count decreased [Recovered/Resolved]
  - Influenza [Unknown]
  - Asthenia [Unknown]
  - Thrombocytopenia [Unknown]
  - Lymphocyte count decreased [Unknown]
  - Enterovirus infection [Unknown]
  - Oestrogen deficiency [Unknown]
  - Memory impairment [Unknown]
  - Cough [Unknown]
  - Infection [Unknown]
  - Malignant neoplasm progression [Unknown]
  - Pneumonia [Unknown]
  - Headache [Recovered/Resolved]
  - Candida infection [Unknown]
  - Headache [Unknown]
  - Metastases to central nervous system [Unknown]
  - Acute lymphocytic leukaemia recurrent [Unknown]
  - Lacrimation increased [Unknown]
  - Herpes simplex [Unknown]

NARRATIVE: CASE EVENT DATE: 20180208
